FAERS Safety Report 14256004 (Version 1)
Quarter: 2017Q4

REPORT INFORMATION
  Report Type: Report from Study
  Country: US (occurrence: US)
  Receive Date: 20171206
  Receipt Date: 20171206
  Transmission Date: 20180321
  Serious: Yes (Hospitalization)
  Sender: FDA-Public Use
  Company Number: US-PFIZER INC-2017482473

PATIENT
  Age: 57 Year
  Sex: Female

DRUGS (1)
  1. IBRANCE [Suspect]
     Active Substance: PALBOCICLIB
     Indication: BREAST CANCER
     Dosage: 125 MG, CYCLIC (DAILY, 3 WEEKS ON/1 WEEK OFF)
     Route: 048
     Dates: start: 20171104, end: 20171128

REACTIONS (6)
  - Vomiting [Unknown]
  - Dehydration [Unknown]
  - Nausea [Unknown]
  - Malaise [Unknown]
  - Fatigue [Unknown]
  - Hypercalcaemia [Unknown]

NARRATIVE: CASE EVENT DATE: 2017
